FAERS Safety Report 8697686 (Version 2)
Quarter: 2013Q4

REPORT INFORMATION
  Report Type: Spontaneous
  Country: US (occurrence: US)
  Receive Date: 20120801
  Receipt Date: 20131101
  Transmission Date: 20140711
  Serious: No
  Sender: FDA-Public Use
  Company Number: US-009507513-97040026

PATIENT
  Age: 79 Year
  Sex: Female

DRUGS (7)
  1. FOSAMAX [Suspect]
     Indication: OSTEOPOROSIS
     Dosage: 10 MG, QD
     Route: 048
     Dates: start: 19960901, end: 19970331
  2. INDERAL [Concomitant]
  3. SYNTHROID [Concomitant]
  4. PREMARIN [Concomitant]
  5. COUMADIN [Concomitant]
  6. RELAFEN [Concomitant]
  7. MK-9039 [Concomitant]

REACTIONS (2)
  - Mouth ulceration [Unknown]
  - Tongue ulceration [Unknown]
